FAERS Safety Report 8972040 (Version 1)
Quarter: 2012Q4

REPORT INFORMATION
  Report Type: 
  Country: NL (occurrence: NL)
  Receive Date: 20121218
  Receipt Date: 20121218
  Transmission Date: 20130627
  Serious: Yes (Life-Threatening, Hospitalization)
  Sender: FDA-Public Use
  Company Number: NL-TEVA-375412ISR

PATIENT
  Age: 56 Year
  Sex: Male

DRUGS (1)
  1. AMOXICILLINE [Suspect]
     Indication: UPPER RESPIRATORY TRACT INFECTION
     Dosage: 2 times per day 1 piece (s)
     Route: 048
     Dates: start: 20121129, end: 20121129

REACTIONS (3)
  - Acute coronary syndrome [Recovering/Resolving]
  - Anaphylactic reaction [Recovering/Resolving]
  - Diarrhoea [None]
